FAERS Safety Report 9627069 (Version 1)
Quarter: 2013Q4

REPORT INFORMATION
  Report Type: Report from Study
  Country: CO (occurrence: CO)
  Receive Date: 20131016
  Receipt Date: 20131016
  Transmission Date: 20140711
  Serious: Yes (Other)
  Sender: FDA-Public Use
  Company Number: CO-US-EMD SERONO, INC.-7242770

PATIENT
  Age: 18 Year
  Sex: Female
  Weight: 36 kg

DRUGS (4)
  1. SAIZEN [Suspect]
     Indication: BODY HEIGHT BELOW NORMAL
     Route: 058
     Dates: start: 20130606, end: 20130622
  2. SAIZEN [Suspect]
     Indication: GROWTH HORMONE DEFICIENCY
  3. PREDNISOLONE [Suspect]
     Indication: SYSTEMIC LUPUS ERYTHEMATOSUS
     Route: 048
  4. MYCOPHENOLATE [Suspect]
     Indication: SYSTEMIC LUPUS ERYTHEMATOSUS
     Route: 048

REACTIONS (3)
  - Renal failure chronic [Unknown]
  - Injection site rash [Unknown]
  - Injection site pain [Unknown]
